FAERS Safety Report 17245021 (Version 2)
Quarter: 2020Q1

REPORT INFORMATION
  Report Type: Report from Study
  Country: US (occurrence: US)
  Receive Date: 20200108
  Receipt Date: 20200205
  Transmission Date: 20200409
  Serious: No
  Sender: FDA-Public Use
  Company Number: NVSC2020US002187

PATIENT
  Sex: Female

DRUGS (1)
  1. COSENTYX [Suspect]
     Active Substance: SECUKINUMAB
     Indication: ANKYLOSING SPONDYLITIS
     Route: 058

REACTIONS (4)
  - Fatigue [Recovering/Resolving]
  - Injection site reaction [Recovering/Resolving]
  - Urticaria [Recovering/Resolving]
  - Therapeutic product effect decreased [Not Recovered/Not Resolved]
